FAERS Safety Report 5541524-3 (Version None)
Quarter: 2007Q4

REPORT INFORMATION
  Report Type: 
  Country: None (occurrence: None)
  Receive Date: 20071210
  Receipt Date: 20071130
  Transmission Date: 20080405
  Serious: Yes (Other)
  Sender: FDA-Public Use
  Company Number: PHBS2007JP19183

PATIENT
  Sex: Female

DRUGS (5)
  1. ZOMETA [Suspect]
     Indication: BREAST CANCER
  2. AREDIA [Suspect]
     Indication: BREAST CANCER
  3. HERCEPTIN [Concomitant]
  4. XELODA [Concomitant]
  5. PREDONINE [Concomitant]

REACTIONS (2)
  - ORAL SURGERY [None]
  - OSTEONECROSIS [None]
